FAERS Safety Report 7572915-7 (Version None)
Quarter: 2011Q2

REPORT INFORMATION
  Report Type: 
  Country: None (occurrence: None)
  Receive Date: 20110627
  Receipt Date: 20110613
  Transmission Date: 20111010
  Serious: Yes (Other)
  Sender: FDA-Public Use
  Company Number: CA-JNJFOC-20110606535

PATIENT
  Sex: Female
  Weight: 72 kg

DRUGS (8)
  1. REMICADE [Suspect]
     Indication: RHEUMATOID ARTHRITIS
     Route: 042
     Dates: start: 20100614
  2. FOLIC ACID [Concomitant]
  3. REMICADE [Suspect]
     Route: 042
     Dates: start: 20110117
  4. DILTIAZEM [Concomitant]
  5. DICLOFENAC SODIUM [Concomitant]
  6. METHOTREXATE [Concomitant]
  7. PREDNISONE [Concomitant]
  8. AVAPRO [Concomitant]

REACTIONS (1)
  - INTERVERTEBRAL DISC PROTRUSION [None]
